FAERS Safety Report 12135317 (Version 1)
Quarter: 2016Q1

REPORT INFORMATION
  Report Type: Spontaneous
  Country: US (occurrence: US)
  Receive Date: 20160302
  Receipt Date: 20160302
  Transmission Date: 20160526
  Serious: Yes (Other)
  Sender: FDA-Public Use
  Company Number: US-ROCHE-1718055

PATIENT
  Sex: Male

DRUGS (3)
  1. CARBATROL [Concomitant]
     Active Substance: CARBAMAZEPINE
     Indication: ANXIETY
     Dosage: 400 MG AT BEDTIME, 200 MG 3 TIMES DAILY
     Route: 065
  2. LUVOX [Concomitant]
     Active Substance: FLUVOXAMINE MALEATE
     Indication: ANXIETY
     Dosage: 100 MG AT BEDTIME
     Route: 065
  3. KLONOPIN [Suspect]
     Active Substance: CLONAZEPAM
     Indication: ANXIETY
     Dosage: 0.5 MG 3 TIMES DAILY WITH MEALS, 1.5 MG AT BEDTIME
     Route: 065

REACTIONS (4)
  - Wrist fracture [Unknown]
  - Rhinorrhoea [Recovered/Resolved]
  - Hand fracture [Unknown]
  - Accident [Unknown]
